FAERS Safety Report 25084512 (Version 1)
Quarter: 2025Q1

REPORT INFORMATION
  Report Type: Other
  Country: FR (occurrence: FR)
  Receive Date: 20250317
  Receipt Date: 20250317
  Transmission Date: 20250408
  Serious: Yes (Other)
  Sender: Atnahs Healthcare
  Company Number: None

PATIENT
  Age: 29 Year
  Sex: Male

DRUGS (3)
  1. DIAZEPAM [Suspect]
     Active Substance: DIAZEPAM
     Indication: Product used for unknown indication
  2. COCAINE [Suspect]
     Active Substance: COCAINE
     Indication: Product used for unknown indication
  3. ALCOHOL [Suspect]
     Active Substance: ALCOHOL
     Indication: Product used for unknown indication

REACTIONS (5)
  - Tachycardia [Recovered/Resolved]
  - Respiratory alkalosis [Recovered/Resolved]
  - Hypokalaemia [Recovered/Resolved]
  - Drug use disorder [Unknown]
  - Substance use disorder [Unknown]
